FAERS Safety Report 13383509 (Version 2)
Quarter: 2018Q2

REPORT INFORMATION
  Report Type: Spontaneous
  Country: DE (occurrence: DE)
  Receive Date: 20170329
  Receipt Date: 20180504
  Transmission Date: 20180711
  Serious: Yes (Other)
  Sender: FDA-Public Use
  Company Number: DE-SA-2017SA050954

PATIENT
  Age: 82 Year
  Sex: Male

DRUGS (3)
  1. HYDROCHLOROTHIAZIDE/IRBESARTAN [Suspect]
     Active Substance: HYDROCHLOROTHIAZIDE\IRBESARTAN
     Route: 065
  2. ACETYLSALICYLIC ACID [Suspect]
     Active Substance: ASPIRIN
     Route: 065
  3. ALLOPURINOL. [Suspect]
     Active Substance: ALLOPURINOL
     Route: 065

REACTIONS (7)
  - Actinic keratosis [Unknown]
  - Bowen^s disease [Unknown]
  - Carcinoma in situ of skin [Unknown]
  - Precancerous skin lesion [Unknown]
  - Carcinogenicity [Unknown]
  - Photosensitivity reaction [Unknown]
  - Skin cancer [Unknown]
